FAERS Safety Report 4903619-4 (Version None)
Quarter: 2006Q1

REPORT INFORMATION
  Report Type: 
  Country: None (occurrence: None)
  Receive Date: 20060208
  Receipt Date: 20060112
  Transmission Date: 20060701
  Serious: Yes (Hospitalization)
  Sender: FDA-Public Use
  Company Number: 2006UW00569

PATIENT
  Age: 23053 Day
  Sex: Male
  Weight: 78.6 kg

DRUGS (4)
  1. ROSUVASTATIN CODE NOT BROKEN [Suspect]
     Indication: PROPHYLAXIS
     Route: 048
     Dates: start: 20031219
  2. ADVAIR DISKUS 100/50 [Concomitant]
     Indication: CHRONIC OBSTRUCTIVE PULMONARY DISEASE
     Route: 055
     Dates: start: 20020801
  3. PRINIVIL [Concomitant]
     Indication: HYPERTENSION
     Route: 048
     Dates: start: 19930428
  4. DYAZIDE [Concomitant]
     Indication: HYPERTENSION
     Route: 048
     Dates: start: 19980113

REACTIONS (2)
  - EMPHYSEMA [None]
  - PNEUMONIA [None]
